FAERS Safety Report 18636996 (Version 3)
Quarter: 2021Q1

REPORT INFORMATION
  Report Type: Spontaneous
  Country: US (occurrence: US)
  Receive Date: 20201219
  Receipt Date: 20210107
  Transmission Date: 20210419
  Serious: No
  Sender: FDA-Public Use
  Company Number: US-009507513-2012USA006322

PATIENT
  Age: 25 Year
  Sex: Female
  Weight: 102.04 kg

DRUGS (1)
  1. NEXPLANON [Suspect]
     Active Substance: ETONOGESTREL
     Indication: CONTRACEPTION
     Dosage: 1 DOSAGE FORM (ROD) EVERY 3 YEARS IN LEFT ARM
     Route: 059
     Dates: start: 20201103, end: 20201214

REACTIONS (4)
  - Complication of device removal [Recovered/Resolved]
  - Device kink [Recovered/Resolved]
  - Implant site pain [Recovered/Resolved]
  - Medical device site discomfort [Recovered/Resolved]

NARRATIVE: CASE EVENT DATE: 20201105
